FAERS Safety Report 7439297-2 (Version None)
Quarter: 2011Q2

REPORT INFORMATION
  Report Type: 
  Country: None (occurrence: None)
  Receive Date: 20110427
  Receipt Date: 20091122
  Transmission Date: 20111010
  Serious: Yes (Death, Hospitalization, Other)
  Sender: FDA-Public Use
  Company Number: US-BAYER-200940713NA

PATIENT
  Age: 79 Year
  Sex: Male
  Weight: 80.726 kg

DRUGS (33)
  1. TRASYLOL [Suspect]
     Indication: AORTIC VALVE REPLACEMENT
  2. FACTOR VII [Concomitant]
     Dosage: UNK
     Dates: start: 20060701
  3. CALCITONIN [Concomitant]
  4. MIACALCIN [Concomitant]
     Dosage: NASAL SPRAY
  5. MIDAZOLAM [Concomitant]
  6. PRIMACOR [Concomitant]
     Dosage: UNK
     Dates: start: 20060701
  7. SPIRIVA [Concomitant]
  8. INSULIN [INSULIN] [Concomitant]
  9. MAGNESIUM SULFATE [Concomitant]
  10. PLAVIX [Concomitant]
  11. PEPCID AC [Concomitant]
  12. ADVAIR DISKUS 100/50 [Concomitant]
  13. VICODIN [Concomitant]
  14. CHONDROITIN [Concomitant]
  15. MANNITOL [Concomitant]
  16. LEVOPHED [Concomitant]
     Dosage: UNK
     Dates: start: 20060701
  17. GLUCOSAMINE [GLUCOSAMINE] [Concomitant]
  18. PLATELETS [Concomitant]
     Dosage: 2 U, UNK
     Dates: start: 20060701
  19. CRYOPRECIPITATES [Concomitant]
     Dosage: 10 U, UNK
     Dates: start: 20060701
  20. MS CONTIN [Concomitant]
  21. CARDIOPLEGIA [Concomitant]
  22. ACETYLSALICYLIC ACID SRT [Concomitant]
  23. PLASMA [Concomitant]
     Dosage: 4 U, UNK
     Dates: start: 20060701
  24. SINGULAIR [Concomitant]
  25. PANCURONIUM BROMIDE [Concomitant]
  26. ALBUMEN [Concomitant]
  27. TRASYLOL [Suspect]
     Indication: CORONARY ARTERY BYPASS
     Dosage: UNK
     Route: 042
     Dates: start: 20060701, end: 20060701
  28. RED BLOOD CELLS [Concomitant]
     Dosage: 7 U, UNK
     Dates: start: 20060701
  29. AMLODIPINE [Concomitant]
  30. ATENOLOL [Concomitant]
  31. HEPARIN [Concomitant]
     Dosage: 1000 ML, UNK
     Route: 042
  32. PROTAMINE SULFATE [Concomitant]
  33. DOPAMINE HCL [Concomitant]

REACTIONS (14)
  - RENAL INJURY [None]
  - RENAL FAILURE [None]
  - FEAR [None]
  - DEATH [None]
  - MULTI-ORGAN FAILURE [None]
  - RENAL IMPAIRMENT [None]
  - STRESS [None]
  - EMOTIONAL DISTRESS [None]
  - MENTAL DISORDER [None]
  - UNEVALUABLE EVENT [None]
  - PAIN [None]
  - ANHEDONIA [None]
  - ANXIETY [None]
  - INJURY [None]
